FAERS Safety Report 21291044 (Version 1)
Quarter: 2022Q3

REPORT INFORMATION
  Report Type: Spontaneous
  Country: US (occurrence: US)
  Receive Date: 20220903
  Receipt Date: 20220903
  Transmission Date: 20221027
  Serious: Yes (Other)
  Sender: FDA-Public Use
  Company Number: US-SA-SAC20220830001310

PATIENT
  Sex: Female

DRUGS (4)
  1. ZANTAC [Suspect]
     Active Substance: RANITIDINE HYDROCHLORIDE
     Dosage: UNK,OVER THE COUNTER ZANTAC FROM APPROX 1999 TO 2018,
     Route: 048
     Dates: start: 1999, end: 2018
  2. ZANTAC [Suspect]
     Active Substance: RANITIDINE HYDROCHLORIDE
     Dosage: UNK,PRESCRIPTION ZANTAC FROM APPROX 1999 TO 2018
     Route: 048
     Dates: start: 1999, end: 2018
  3. RANITIDINE HYDROCHLORIDE [Suspect]
     Active Substance: RANITIDINE HYDROCHLORIDE
     Dosage: UNK,PRESCRIPTION RANITIDINE FROM APPROX 2000 TO 2018
     Route: 048
     Dates: start: 2000, end: 2018
  4. RANITIDINE HYDROCHLORIDE [Suspect]
     Active Substance: RANITIDINE HYDROCHLORIDE
     Dosage: UNK,OVER THE COUNTER RANITIDNE FROM APPROX 2000 TO 2018
     Route: 048
     Dates: start: 2000, end: 2018

REACTIONS (1)
  - Breast cancer female [Unknown]
